FAERS Safety Report 8554748 (Version 2)
Quarter: 2014Q4

REPORT INFORMATION
  Report Type: Report from Study
  Country: US (occurrence: US)
  Receive Date: 20120510
  Receipt Date: 20141223
  Transmission Date: 20150529
  Serious: Yes (Hospitalization)
  Sender: FDA-Public Use
  Company Number: US-BIOGENIDEC-2012BI015616

PATIENT
  Age: 42 Year
  Sex: Male

DRUGS (2)
  1. TYSABRI [Suspect]
     Active Substance: NATALIZUMAB
     Indication: MULTIPLE SCLEROSIS
     Route: 042
     Dates: start: 20081215, end: 20120919
  2. TYSABRI [Suspect]
     Active Substance: NATALIZUMAB
     Indication: MULTIPLE SCLEROSIS
     Route: 042
     Dates: start: 20130425, end: 20141023

REACTIONS (26)
  - Diarrhoea [Not Recovered/Not Resolved]
  - Eyelid ptosis [Not Recovered/Not Resolved]
  - Angina pectoris [Not Recovered/Not Resolved]
  - Multiple sclerosis relapse [Not Recovered/Not Resolved]
  - Asthenia [Not Recovered/Not Resolved]
  - Hyperaesthesia [Not Recovered/Not Resolved]
  - Mass [Not Recovered/Not Resolved]
  - Muscle spasms [Not Recovered/Not Resolved]
  - Pain in extremity [Not Recovered/Not Resolved]
  - Feeling abnormal [Recovered/Resolved]
  - Back pain [Not Recovered/Not Resolved]
  - Muscle twitching [Not Recovered/Not Resolved]
  - Eye disorder [Not Recovered/Not Resolved]
  - Headache [Not Recovered/Not Resolved]
  - Confusional state [Not Recovered/Not Resolved]
  - Drug hypersensitivity [Recovered/Resolved]
  - Tinnitus [Not Recovered/Not Resolved]
  - Tremor [Not Recovered/Not Resolved]
  - Diplopia [Not Recovered/Not Resolved]
  - Vision blurred [Not Recovered/Not Resolved]
  - Peroneal nerve palsy [Not Recovered/Not Resolved]
  - Implantable defibrillator replacement [Unknown]
  - Constipation [Not Recovered/Not Resolved]
  - Pain of skin [Not Recovered/Not Resolved]
  - Fatigue [Not Recovered/Not Resolved]
  - Sensory disturbance [Recovered/Resolved]

NARRATIVE: CASE EVENT DATE: 2012
